FAERS Safety Report 24447354 (Version 1)
Quarter: 2024Q4

REPORT INFORMATION
  Report Type: Spontaneous
  Country: US (occurrence: US)
  Receive Date: 20241016
  Receipt Date: 20241016
  Transmission Date: 20250114
  Serious: No
  Sender: SANOFI AVENTIS
  Company Number: US-SA-2024SA296969

PATIENT
  Age: 35 Year
  Sex: Female
  Weight: 112.47 kg

DRUGS (7)
  1. DUPIXENT [Suspect]
     Active Substance: DUPILUMAB
     Indication: Dermatitis atopic
     Dosage: 300 MG, QOW
     Route: 058
     Dates: start: 2019
  2. DUPIXENT [Suspect]
     Active Substance: DUPILUMAB
     Indication: Asthma
  3. ALBUTEROL [Concomitant]
     Active Substance: ALBUTEROL
  4. ETONOGESTREL AND ETHINYL ESTRADIOL [Concomitant]
     Active Substance: ETHINYL ESTRADIOL\ETONOGESTREL
  5. LIOTHYRONINE SODIUM [Concomitant]
     Active Substance: LIOTHYRONINE SODIUM
  6. LORAZEPAM [Concomitant]
     Active Substance: LORAZEPAM
  7. ALBUTEROL SULFATE [Concomitant]
     Active Substance: ALBUTEROL SULFATE

REACTIONS (2)
  - Tendonitis [Not Recovered/Not Resolved]
  - Arthralgia [Not Recovered/Not Resolved]

NARRATIVE: CASE EVENT DATE: 20190101
